FAERS Safety Report 18600273 (Version 1)
Quarter: 2020Q4

REPORT INFORMATION
  Report Type: Spontaneous
  Country: US (occurrence: US)
  Receive Date: 20201210
  Receipt Date: 20201210
  Transmission Date: 20210114
  Serious: Yes (Hospitalization)
  Sender: FDA-Public Use
  Company Number: None

PATIENT
  Sex: Male
  Weight: 92.6 kg

DRUGS (1)
  1. ERBITUX [Suspect]
     Active Substance: CETUXIMAB

REACTIONS (6)
  - Acute kidney injury [None]
  - Blood electrolytes abnormal [None]
  - Fatigue [None]
  - Hypotension [None]
  - Hypovolaemia [None]
  - Dehydration [None]

NARRATIVE: CASE EVENT DATE: 20201125
